FAERS Safety Report 25928253 (Version 1)
Quarter: 2025Q4

REPORT INFORMATION
  Report Type: Report from Study
  Country: US (occurrence: US)
  Receive Date: 20251016
  Receipt Date: 20251016
  Transmission Date: 20260118
  Serious: Yes (Hospitalization, Other)
  Sender: JOHNSON AND JOHNSON
  Company Number: US-JNJFOC-20251019396

PATIENT
  Age: 69 Year
  Sex: Female

DRUGS (3)
  1. SPRAVATO [Suspect]
     Active Substance: ESKETAMINE
     Indication: Depression
     Dosage: ^^56 MG, 3 TOTAL DOSES^^
     Route: 045
     Dates: start: 20240418, end: 20240425
  2. SPRAVATO [Suspect]
     Active Substance: ESKETAMINE
     Dosage: ^^84 MG, 57 TOTAL DOSES^^
     Route: 045
     Dates: start: 20240429, end: 20250926
  3. SPRAVATO [Suspect]
     Active Substance: ESKETAMINE
     Dosage: ^^84 MG, 1 TOTAL DOSE^^, RECENT DOSE
     Route: 045
     Dates: start: 20251014, end: 20251014

REACTIONS (1)
  - Cerebrovascular accident [Unknown]

NARRATIVE: CASE EVENT DATE: 20251014
